FAERS Safety Report 16626442 (Version 1)
Quarter: 2019Q3

REPORT INFORMATION
  Report Type: Report from Study
  Country: US (occurrence: US)
  Receive Date: 20190724
  Receipt Date: 20190724
  Transmission Date: 20191004
  Serious: Yes (Other)
  Sender: FDA-Public Use
  Company Number: US-BRISTOL-MYERS SQUIBB COMPANY-BMS-2019-071268

PATIENT
  Age: 49 Year
  Sex: Male

DRUGS (2)
  1. NIVOLUMAB [Suspect]
     Active Substance: NIVOLUMAB
     Indication: HEAD AND NECK CANCER
     Dosage: 172 MILLIGRAM
     Route: 042
     Dates: start: 20181219, end: 20190716
  2. IPILIMUMAB [Suspect]
     Active Substance: IPILIMUMAB
     Indication: HEAD AND NECK CANCER
     Dosage: 57 MILLIGRAM
     Route: 042
     Dates: start: 20181219, end: 20190716

REACTIONS (2)
  - Radiation injury [Not Recovered/Not Resolved]
  - Ulcer [Not Recovered/Not Resolved]

NARRATIVE: CASE EVENT DATE: 20190716
